FAERS Safety Report 16528936 (Version 1)
Quarter: 2019Q3

REPORT INFORMATION
  Report Type: Spontaneous
  Country: US (occurrence: US)
  Receive Date: 20190703
  Receipt Date: 20190703
  Transmission Date: 20191004
  Serious: No
  Sender: FDA-Public Use
  Company Number: US-AMAG PHARMACEUTICALS, INC.-AMAG201903511

PATIENT
  Age: 61 Year
  Sex: Female
  Weight: 76.27 kg

DRUGS (15)
  1. DULOXETINE. [Concomitant]
     Active Substance: DULOXETINE
     Indication: CHRONIC IDIOPATHIC PAIN SYNDROME
     Dosage: 60 MG BID/BY MOUTH
  2. OMEGA 3 ACID [Concomitant]
     Indication: DRY EYE
     Dosage: 1 GRAM BID/BY MOUTH
  3. FROVA [Concomitant]
     Active Substance: FROVATRIPTAN SUCCINATE
     Indication: MIGRAINE
  4. CELEBREX [Concomitant]
     Active Substance: CELECOXIB
     Indication: CHRONIC IDIOPATHIC PAIN SYNDROME
     Dosage: 200 MG ONCE DAILY/BY MOUTH
  5. AUTOLOGOUS SERUM AND SODIUM CHLORIDE [Concomitant]
     Indication: DRY EYE
     Dosage: AS NEEDED
     Route: 047
  6. CYCLOBENZAPRINE. [Concomitant]
     Active Substance: CYCLOBENZAPRINE
     Indication: HYPOTONIA
     Dosage: 10 MG ONCE DAILY/BY MOUTH
  7. ROPINIROLE. [Concomitant]
     Active Substance: ROPINIROLE
     Indication: RESTLESS LEGS SYNDROME
     Dosage: 0.25 MG ONCE DAILY/BY MOUTH
  8. NORTRIPTYLINE [Concomitant]
     Active Substance: NORTRIPTYLINE
     Indication: PAIN
     Dosage: 25 MG BID/BY MOUTH
  9. RESTASIS [Concomitant]
     Active Substance: CYCLOSPORINE
     Indication: DRY EYE
     Dosage: 2 DROPS BID
     Route: 047
  10. PANTOPRAZOLE [Concomitant]
     Active Substance: PANTOPRAZOLE
     Indication: GASTROOESOPHAGEAL REFLUX DISEASE
     Dosage: 40 MG ONCE DAILY/BY MOUTH
  11. INTRAROSA [Suspect]
     Active Substance: PRASTERONE
     Indication: DYSPAREUNIA
     Dosage: EVERYNIGHT/VAGINALLY
     Route: 067
     Dates: start: 201906
  12. LEVORPHANOL [Concomitant]
     Active Substance: LEVORPHANOL
     Indication: CHRONIC IDIOPATHIC PAIN SYNDROME
     Dosage: 100 MG BID/BY MOUTH
  13. VOLTAREN [Concomitant]
     Active Substance: DICLOFENAC SODIUM
     Indication: PAIN
     Dosage: 100 GRAMS AS NEEDED/TOPICAL
     Route: 061
  14. LAMICTAL [Concomitant]
     Active Substance: LAMOTRIGINE
     Indication: DEPRESSION
     Dosage: 25 MG ONCE DAILY/BY MOUTH
  15. VERAPAMIL ER [Concomitant]
     Active Substance: VERAPAMIL HYDROCHLORIDE
     Indication: MIGRAINE
     Dosage: 240 MG ONCE DAILY

REACTIONS (1)
  - Hot flush [Not Recovered/Not Resolved]

NARRATIVE: CASE EVENT DATE: 201906
